FAERS Safety Report 19685843 (Version 1)
Quarter: 2021Q3

REPORT INFORMATION
  Report Type: Spontaneous
  Country: US (occurrence: US)
  Receive Date: 20210811
  Receipt Date: 20210811
  Transmission Date: 20211014
  Serious: No
  Sender: FDA-Public Use
  Company Number: None

PATIENT
  Age: 52 Year
  Sex: Female
  Weight: 51.75 kg

DRUGS (4)
  1. ALBUTEROL INHALER [Concomitant]
     Active Substance: ALBUTEROL
  2. CYMBALTA [Suspect]
     Active Substance: DULOXETINE HYDROCHLORIDE
     Indication: NEURALGIA
     Dosage: ?          QUANTITY:1 CAPSULE(S);?
     Route: 048
     Dates: start: 20210519, end: 20210709
  3. SPIRIVA [Concomitant]
     Active Substance: TIOTROPIUM BROMIDE MONOHYDRATE
  4. SYMBICORT [Concomitant]
     Active Substance: BUDESONIDE\FORMOTEROL FUMARATE DIHYDRATE

REACTIONS (6)
  - Electric shock sensation [None]
  - Akathisia [None]
  - Nausea [None]
  - Diarrhoea [None]
  - Muscle twitching [None]
  - Nerve compression [None]

NARRATIVE: CASE EVENT DATE: 20210708
